FAERS Safety Report 10579004 (Version 2)
Quarter: 2014Q4

REPORT INFORMATION
  Report Type: Spontaneous
  Country: US (occurrence: US)
  Receive Date: 20141112
  Receipt Date: 20141215
  Transmission Date: 20150529
  Serious: No
  Sender: FDA-Public Use
  Company Number: US-PFIZER INC-2014309527

PATIENT
  Age: 71 Year
  Sex: Female

DRUGS (1)
  1. PREMARIN [Suspect]
     Active Substance: ESTROGENS, CONJUGATED
     Indication: VULVOVAGINAL DRYNESS
     Dosage: 0.5 MG, ONE OR TWO TIMES A WEEK

REACTIONS (3)
  - Vulvovaginal burning sensation [Recovering/Resolving]
  - Product quality issue [Unknown]
  - Vulvovaginal mycotic infection [Unknown]
